FAERS Safety Report 9030775 (Version 1)
Quarter: 2013Q1

REPORT INFORMATION
  Report Type: Spontaneous
  Country: US (occurrence: US)
  Receive Date: 20130123
  Receipt Date: 20130123
  Transmission Date: 20140127
  Serious: Yes (Hospitalization)
  Sender: FDA-Public Use
  Company Number: PHEH2013US001843

PATIENT
  Age: 27 None
  Sex: Female
  Weight: 160 kg

DRUGS (2)
  1. GILENYA [Suspect]
     Indication: MULTIPLE SCLEROSIS
     Dosage: UNK UKN, QD
     Route: 048
     Dates: start: 201104
  2. SPARATEC [Concomitant]

REACTIONS (7)
  - Pancreatitis [Recovered/Resolved]
  - Biliary dilatation [Unknown]
  - Gallbladder disorder [Unknown]
  - Cholelithiasis [Unknown]
  - Abdominal pain [Unknown]
  - Aspartate aminotransferase increased [Unknown]
  - Alanine aminotransferase increased [Unknown]
